FAERS Safety Report 7153989-4 (Version None)
Quarter: 2010Q4

REPORT INFORMATION
  Report Type: 
  Country: None (occurrence: None)
  Receive Date: 20101213
  Receipt Date: 20101201
  Transmission Date: 20110411
  Serious: Yes (Hospitalization)
  Sender: FDA-Public Use
  Company Number: CA-ELI_LILLY_AND_COMPANY-CA201010004672

PATIENT
  Age: 64 Year
  Sex: Female

DRUGS (9)
  1. FORTEO [Suspect]
     Indication: OSTEOPOROSIS
     Dosage: 20 UG, DAILY (1/D)
     Route: 058
     Dates: start: 20100310, end: 20101015
  2. FORTEO [Suspect]
     Dosage: 20 UG, DAILY (1/D)
     Route: 058
     Dates: start: 20101015
  3. OXYCONTIN [Concomitant]
  4. DILTIAZEM [Concomitant]
  5. ZOPICLONE [Concomitant]
  6. CIPROFLOXACIN [Concomitant]
  7. FLAGYL [Concomitant]
  8. TYLENOL WITH CODEIN #3 [Concomitant]
  9. CIPRALEX [Concomitant]

REACTIONS (2)
  - CHOLELITHIASIS [None]
  - PAIN [None]
